FAERS Safety Report 26184518 (Version 1)
Quarter: 2025Q4

REPORT INFORMATION
  Report Type: Spontaneous
  Country: EU (occurrence: EU)
  Receive Date: 20251222
  Receipt Date: 20251222
  Transmission Date: 20260118
  Serious: Yes (Other)
  Sender: NOVARTIS
  Company Number: None

PATIENT
  Age: 42 Year
  Sex: Male

DRUGS (1)
  1. TEGRETOL [Suspect]
     Active Substance: CARBAMAZEPINE
     Indication: Epilepsy
     Dosage: 2400 MG (1 TOTAL) (2.4G AU LIEU DE 1.2G)
     Route: 048
     Dates: start: 20251201, end: 20251201

REACTIONS (4)
  - Diplopia [Recovering/Resolving]
  - Feeling drunk [Recovering/Resolving]
  - Somnolence [Recovering/Resolving]
  - Incorrect dose administered [Recovered/Resolved]

NARRATIVE: CASE EVENT DATE: 20251201
